FAERS Safety Report 5291911-6 (Version None)
Quarter: 2007Q2

REPORT INFORMATION
  Report Type: 
  Country: None (occurrence: None)
  Receive Date: 20070410
  Receipt Date: 20070323
  Transmission Date: 20071010
  Serious: Yes (Disabling)
  Sender: FDA-Public Use
  Company Number: BR-AVENTIS-200712600GDDC

PATIENT
  Age: 62 Year
  Sex: Female

DRUGS (7)
  1. INSULIN GLARGINE [Suspect]
     Indication: DIABETES MELLITUS
     Route: 058
     Dates: start: 20050725
  2. OPTIPEN (INSULIN PUMP) [Suspect]
     Indication: DIABETES MELLITUS
  3. CODE UNBROKEN [Suspect]
     Dates: start: 20050725
  4. LOSARTAN POSTASSIUM [Concomitant]
     Dates: start: 20050701
  5. PROPRANOLOL [Concomitant]
     Dates: start: 19990301
  6. HYDROCHLOROTHIAZIDE [Concomitant]
     Dates: start: 20010101
  7. AAS [Concomitant]
     Dates: start: 19961001

REACTIONS (1)
  - VISUAL DISTURBANCE [None]
